FAERS Safety Report 12388739 (Version 5)
Quarter: 2016Q4

REPORT INFORMATION
  Report Type: Report from Study
  Country: US (occurrence: US)
  Receive Date: 20160520
  Receipt Date: 20161107
  Transmission Date: 20170207
  Serious: Yes (Hospitalization, Other)
  Sender: FDA-Public Use
  Company Number: US-BAYER-2016-092397

PATIENT
  Age: 85 Year
  Sex: Female
  Weight: 90.7 kg

DRUGS (6)
  1. APIXABAN [Concomitant]
     Active Substance: APIXABAN
  2. ADEMPAS [Suspect]
     Active Substance: RIOCIGUAT
     Indication: PULMONARY HYPERTENSION
     Dosage: 1 MG, TID
     Route: 048
  3. ADEMPAS [Suspect]
     Active Substance: RIOCIGUAT
     Indication: PULMONARY HYPERTENSION
     Dosage: UNK
     Route: 048
     Dates: start: 20160425
  4. DILTIAZEM HYDROCHLORIDE. [Concomitant]
     Active Substance: DILTIAZEM HYDROCHLORIDE
  5. ADEMPAS [Suspect]
     Active Substance: RIOCIGUAT
     Indication: PULMONARY HYPERTENSION
     Dosage: 2 MG, TID
     Route: 048
  6. ADEMPAS [Suspect]
     Active Substance: RIOCIGUAT
     Indication: PULMONARY HYPERTENSION
     Dosage: 1.5 MG, TID
     Route: 048

REACTIONS (19)
  - Dizziness [Recovered/Resolved]
  - Swelling face [Recovered/Resolved]
  - Pneumonia [Unknown]
  - Back pain [Unknown]
  - Abnormal weight gain [None]
  - Pericardial effusion [Unknown]
  - Heart rate increased [Unknown]
  - Chest pain [Unknown]
  - Pain [None]
  - Burning sensation [None]
  - Vision blurred [None]
  - Diarrhoea [Recovered/Resolved]
  - Asthenia [Unknown]
  - Antinuclear antibody positive [None]
  - Joint swelling [Unknown]
  - Dyspnoea [Not Recovered/Not Resolved]
  - Chest discomfort [None]
  - Eye swelling [Unknown]
  - Pollakiuria [None]

NARRATIVE: CASE EVENT DATE: 20160618
